FAERS Safety Report 8634052 (Version 3)
Quarter: 2014Q1

REPORT INFORMATION
  Report Type: Spontaneous
  Country: US (occurrence: US)
  Receive Date: 20120626
  Receipt Date: 20140107
  Transmission Date: 20141002
  Serious: Yes (Hospitalization, Disabling)
  Sender: FDA-Public Use
  Company Number: US-ASTRAZENECA-2012SE36274

PATIENT
  Age: 56 Year
  Sex: Female

DRUGS (11)
  1. NEXIUM [Suspect]
     Indication: GASTROOESOPHAGEAL REFLUX DISEASE
     Dosage: ONCE A DAY
     Route: 048
     Dates: start: 2002, end: 2011
  2. NEXIUM [Suspect]
     Indication: GASTROOESOPHAGEAL REFLUX DISEASE
     Route: 048
     Dates: start: 20080205
  3. PREVACID [Concomitant]
  4. PREMARIN [Concomitant]
     Indication: HORMONE REPLACEMENT THERAPY
     Dates: start: 1994, end: 2010
  5. ZOLOFT [Concomitant]
     Indication: DEPRESSION
  6. FROVA [Concomitant]
     Indication: MIGRAINE
  7. VITAMIN D [Concomitant]
  8. SYNTHROID [Concomitant]
     Indication: THYROID DISORDER
  9. ZOCOR [Concomitant]
     Indication: BLOOD CHOLESTEROL ABNORMAL
  10. HCT [Concomitant]
     Indication: BLOOD PRESSURE ABNORMAL
  11. TUMS [Concomitant]

REACTIONS (12)
  - Gallbladder disorder [Unknown]
  - Gastric disorder [Unknown]
  - Tendon rupture [Unknown]
  - Walking aid user [Unknown]
  - Osteoporosis [Unknown]
  - Cataract [Unknown]
  - Hepatic steatosis [Unknown]
  - Hypothyroidism [Unknown]
  - Multiple fractures [Unknown]
  - Pain in extremity [Unknown]
  - Vitamin D deficiency [Unknown]
  - Depression [Unknown]
